FAERS Safety Report 22644333 (Version 1)
Quarter: 2023Q2

REPORT INFORMATION
  Report Type: Spontaneous
  Country: ES (occurrence: ES)
  Receive Date: 20230627
  Receipt Date: 20230627
  Transmission Date: 20230721
  Serious: Yes (Death, Other)
  Sender: FDA-Public Use
  Company Number: None

PATIENT

DRUGS (1)
  1. BELIMUMAB [Suspect]
     Active Substance: BELIMUMAB
     Indication: Systemic lupus erythematosus
     Dosage: 200 MG, WE(BELIMUMAB 200MG WEEKLY)
     Route: 058
     Dates: start: 20230404, end: 20230508

REACTIONS (3)
  - Pancytopenia [Fatal]
  - Sepsis [Fatal]
  - Injection site cellulitis [Fatal]

NARRATIVE: CASE EVENT DATE: 20230522
